FAERS Safety Report 19926792 (Version 2)
Quarter: 2022Q2

REPORT INFORMATION
  Report Type: Spontaneous
  Country: US (occurrence: None)
  Receive Date: 20211007
  Receipt Date: 20220504
  Transmission Date: 20220721
  Serious: Yes (Death)
  Sender: FDA-Public Use
  Company Number: US-MDD US OPERATIONS-MDD202109-001969

PATIENT
  Age: 67 Year
  Sex: Male
  Weight: 117 kg

DRUGS (2)
  1. XADAGO [Suspect]
     Active Substance: SAFINAMIDE MESYLATE
     Indication: Parkinson^s disease
     Dates: start: 20210919
  2. XADAGO [Suspect]
     Active Substance: SAFINAMIDE MESYLATE
     Dates: start: 20210919

REACTIONS (2)
  - Hyperthermia malignant [Fatal]
  - Overdose [Fatal]

NARRATIVE: CASE EVENT DATE: 20210901
